FAERS Safety Report 18311167 (Version 1)
Quarter: 2020Q3

REPORT INFORMATION
  Report Type: Report from Study
  Country: None (occurrence: US)
  Receive Date: 20200924
  Receipt Date: 20200924
  Transmission Date: 20201103
  Serious: Yes (Hospitalization, Other)
  Sender: FDA-Public Use
  Company Number: US-ABBVIE-20K-163-3559111-00

PATIENT
  Sex: Female

DRUGS (2)
  1. HUMIRA [Suspect]
     Active Substance: ADALIMUMAB
     Indication: PSORIATIC ARTHROPATHY
     Dosage: CITRATE FREE
     Route: 058
  2. HUMIRA [Suspect]
     Active Substance: ADALIMUMAB
     Dosage: CITRATE FREE
     Route: 058

REACTIONS (9)
  - Dysphagia [Unknown]
  - Injection site bruising [Unknown]
  - Odynophagia [Unknown]
  - Hip arthroplasty [Unknown]
  - Incorrect dose administered [Unknown]
  - Injection site vesicles [Unknown]
  - Device issue [Unknown]
  - Needle issue [Unknown]
  - Foreign body in throat [Unknown]

NARRATIVE: CASE EVENT DATE: 2017
